FAERS Safety Report 5413363-5 (Version None)
Quarter: 2007Q3

REPORT INFORMATION
  Report Type: 
  Country: None (occurrence: None)
  Receive Date: 20070814
  Receipt Date: 20070802
  Transmission Date: 20080115
  Serious: Yes (Other)
  Sender: FDA-Public Use
  Company Number: BR-JNJFOC-20070801346

PATIENT
  Age: 9 Year
  Sex: Male
  Weight: 49 kg

DRUGS (2)
  1. HALDOL [Suspect]
     Indication: ACCIDENTAL EXPOSURE
  2. IMIPRAMINE [Suspect]
     Indication: ACCIDENTAL EXPOSURE

REACTIONS (5)
  - ACCIDENTAL EXPOSURE [None]
  - HYPERHIDROSIS [None]
  - HYPERTENSION [None]
  - OPISTHOTONUS [None]
  - TACHYCARDIA [None]
